FAERS Safety Report 6376083-9 (Version None)
Quarter: 2009Q3

REPORT INFORMATION
  Report Type: 
  Country: None (occurrence: None)
  Receive Date: 20090918
  Receipt Date: 20090908
  Transmission Date: 20100115
  Serious: Yes (Hospitalization)
  Sender: FDA-Public Use
  Company Number: A20090716-001

PATIENT
  Age: 77 Year
  Sex: Male

DRUGS (9)
  1. PITAVASTATIN CALCIUM [Suspect]
     Indication: DYSLIPIDAEMIA
     Dosage: 2MG, PO
     Route: 048
     Dates: start: 20090515, end: 20090810
  2. PROBUCOL [Suspect]
     Indication: DYSLIPIDAEMIA
     Dosage: 250 MG, PO
     Route: 048
     Dates: start: 20090515, end: 20090810
  3. METFORMIN HYDROCHLORIDE [Concomitant]
  4. TRIAZOLAM [Concomitant]
  5. BERAPROST SODIUM [Concomitant]
  6. TICLOPIDINE HYDROCHLORIDE [Concomitant]
  7. REBAMIPIDE [Concomitant]
  8. IMIDAPRIL HYDROCHLORIDE [Concomitant]
  9. RANITIDINE HYDROCHLORIDE [Concomitant]

REACTIONS (9)
  - ALANINE AMINOTRANSFERASE INCREASED [None]
  - ASPARTATE AMINOTRANSFERASE INCREASED [None]
  - BLOOD LACTATE DEHYDROGENASE INCREASED [None]
  - CONSTIPATION [None]
  - GAMMA-GLUTAMYLTRANSFERASE INCREASED [None]
  - HEPATIC FUNCTION ABNORMAL [None]
  - MUSCULAR WEAKNESS [None]
  - PYREXIA [None]
  - VOMITING [None]
